FAERS Safety Report 23098301 (Version 1)
Quarter: 2023Q4

REPORT INFORMATION
  Report Type: Report from Study
  Country: DE (occurrence: DE)
  Receive Date: 20231023
  Receipt Date: 20231023
  Transmission Date: 20240110
  Serious: Yes (Life-Threatening, Other)
  Sender: FDA-Public Use
  Company Number: DE-002147023-NVSC2023DE226309

PATIENT
  Age: 48 Year
  Sex: Female

DRUGS (3)
  1. MEKINIST [Suspect]
     Active Substance: TRAMETINIB DIMETHYL SULFOXIDE
     Indication: Malignant melanoma
     Dosage: UNK
     Route: 065
  2. TAFINLAR [Suspect]
     Active Substance: DABRAFENIB MESYLATE
     Indication: Malignant melanoma
     Dosage: UNK
     Route: 065
  3. VITAMIN D NOS [Concomitant]
     Active Substance: VITAMIN D NOS
     Indication: Product used for unknown indication
     Dosage: UNK
     Route: 065

REACTIONS (15)
  - Fear of death [Unknown]
  - Major depression [Unknown]
  - Quality of life decreased [Unknown]
  - Procedural pain [Unknown]
  - Post procedural swelling [Unknown]
  - Fibromyalgia [Unknown]
  - Lymphoedema [Unknown]
  - Fear [Unknown]
  - Feeling guilty [Unknown]
  - Anxiety [Unknown]
  - Decreased interest [Unknown]
  - Myalgia [Unknown]
  - Diarrhoea [Unknown]
  - Arthralgia [Unknown]
  - Fatigue [Unknown]
